FAERS Safety Report 16676763 (Version 1)
Quarter: 2019Q3

REPORT INFORMATION
  Report Type: Spontaneous
  Country: DK (occurrence: DK)
  Receive Date: 20190807
  Receipt Date: 20190807
  Transmission Date: 20191004
  Serious: Yes (Other)
  Sender: FDA-Public Use
  Company Number: DK-ALKEM LABORATORIES LIMITED-DK-ALKEM-2019-07044

PATIENT
  Age: 56 Year
  Sex: Male

DRUGS (3)
  1. PENTAM [Suspect]
     Active Substance: PENTAMIDINE ISETHIONATE
     Indication: CUTANEOUS LEISHMANIASIS
     Dosage: 2 MILLIGRAM/KILOGRAM
     Route: 030
  2. PAROMOMYCIN [Suspect]
     Active Substance: PAROMOMYCIN
     Indication: CUTANEOUS LEISHMANIASIS
     Dosage: 15% IN PETROLATUM
     Route: 061
  3. ITRACONAZOLE. [Suspect]
     Active Substance: ITRACONAZOLE
     Indication: CUTANEOUS LEISHMANIASIS
     Dosage: 50 MILLIGRAM, QID
     Route: 048

REACTIONS (1)
  - Drug resistance [Unknown]
